FAERS Safety Report 9766054 (Version 2)
Quarter: 2014Q1

REPORT INFORMATION
  Report Type: Spontaneous
  Country: US (occurrence: US)
  Receive Date: 20131217
  Receipt Date: 20140103
  Transmission Date: 20141002
  Serious: Yes (Other)
  Sender: FDA-Public Use
  Company Number: US-JNJFOC-20131200549

PATIENT
  Age: 57 Year
  Sex: Male
  Weight: 99.79 kg

DRUGS (4)
  1. DURAGESIC [Suspect]
     Indication: PAIN
     Route: 062
     Dates: start: 201311
  2. DURAGESIC [Suspect]
     Indication: PAIN
     Route: 062
     Dates: start: 20110929
  3. DURAGESIC [Suspect]
     Indication: PAIN
     Route: 062
     Dates: start: 200909, end: 2011
  4. FENTANYL TRANSDERMAL SYSTEM [Suspect]
     Indication: PRODUCT USED FOR UNKNOWN INDICATION
     Route: 062
     Dates: start: 2011

REACTIONS (5)
  - Surgery [Unknown]
  - Drug diversion [Unknown]
  - Breakthrough pain [Not Recovered/Not Resolved]
  - Product packaging quantity issue [Unknown]
  - Incorrect drug administration duration [Unknown]
